FAERS Safety Report 4715544-2 (Version None)
Quarter: 2005Q3

REPORT INFORMATION
  Report Type: 
  Country: None (occurrence: None)
  Receive Date: 20050715
  Receipt Date: 20050715
  Transmission Date: 20060218
  Serious: Yes (Other)
  Sender: FDA-Public Use
  Company Number: None

PATIENT
  Age: 57 Year
  Sex: Male
  Weight: 66.5 kg

DRUGS (1)
  1. METFORMIN [Suspect]

REACTIONS (1)
  - LACTIC ACIDOSIS [None]
